FAERS Safety Report 4895921-X (Version None)
Quarter: 2005Q4

REPORT INFORMATION
  Report Type: 
  Country: None (occurrence: None)
  Receive Date: 20051220
  Receipt Date: 20050329
  Transmission Date: 20060501
  Serious: Yes (Life-Threatening, Other)
  Sender: FDA-Public Use
  Company Number: US111732

PATIENT
  Age: 63 Year
  Sex: Female
  Weight: 97.2 kg

DRUGS (5)
  1. ENBREL [Suspect]
     Indication: RHEUMATOID ARTHRITIS
     Dosage: 25 MG, 1 IN 1WEEKS, SC
     Route: 058
     Dates: start: 20041208, end: 20050201
  2. VALDECOXIB [Concomitant]
  3. ALENDRONATE SODIUM [Concomitant]
  4. LORATADINE [Concomitant]
  5. CALCIUM GLUCONATE [Concomitant]

REACTIONS (4)
  - ADENOCARCINOMA [None]
  - BONE DENSITY DECREASED [None]
  - METASTASES TO LYMPH NODES [None]
  - PAIN [None]
